FAERS Safety Report 24873524 (Version 1)
Quarter: 2025Q1

REPORT INFORMATION
  Report Type: Report from Study
  Country: ES (occurrence: ES)
  Receive Date: 20250122
  Receipt Date: 20250122
  Transmission Date: 20250408
  Serious: Yes (Life-Threatening, Other)
  Sender: JOHNSON AND JOHNSON
  Company Number: ES-JNJFOC-20250156400

PATIENT

DRUGS (3)
  1. DARZALEX [Suspect]
     Active Substance: DARATUMUMAB
     Indication: Plasma cell myeloma
     Route: 065
  2. REVLIMID [Suspect]
     Active Substance: LENALIDOMIDE
     Indication: Plasma cell myeloma
  3. DEXAMETHASONE [Suspect]
     Active Substance: DEXAMETHASONE
     Indication: Plasma cell myeloma

REACTIONS (7)
  - Asthenia [Unknown]
  - Rash [Unknown]
  - Pulmonary embolism [Unknown]
  - Cardiac failure [Unknown]
  - Renal impairment [Unknown]
  - Neutropenia [Unknown]
  - Infection [Unknown]
